FAERS Safety Report 7298311-8 (Version None)
Quarter: 2011Q1

REPORT INFORMATION
  Report Type: 
  Country: None (occurrence: None)
  Receive Date: 20110217
  Receipt Date: 20100215
  Transmission Date: 20110831
  Serious: Yes (Other)
  Sender: FDA-Public Use
  Company Number: US-PFIZER INC-2010004964

PATIENT
  Sex: Female
  Weight: 59.9 kg

DRUGS (2)
  1. MAXITROL [Suspect]
     Indication: EYE INFECTION
     Dosage: UNK
  2. XALATAN [Suspect]
     Indication: GLAUCOMA
     Dosage: 1X DAY BOTH EYES
     Route: 047
     Dates: start: 20090101

REACTIONS (2)
  - HYPERSENSITIVITY [None]
  - EYE INFECTION [None]
